FAERS Safety Report 21921344 (Version 2)
Quarter: 2023Q1

REPORT INFORMATION
  Report Type: Report from Study
  Country: CA (occurrence: CA)
  Receive Date: 20230127
  Receipt Date: 20230223
  Transmission Date: 20230418
  Serious: Yes (Hospitalization, Other)
  Sender: FDA-Public Use
  Company Number: CA-JNJFOC-20221153165

PATIENT
  Age: 26 Year
  Sex: Male

DRUGS (3)
  1. SIMPONI [Suspect]
     Active Substance: GOLIMUMAB
     Indication: Colitis ulcerative
     Route: 058
     Dates: start: 20220506
  2. SIMPONI [Suspect]
     Active Substance: GOLIMUMAB
     Indication: Ankylosing spondylitis
     Route: 058
  3. SIMPONI [Suspect]
     Active Substance: GOLIMUMAB
     Indication: Colitis

REACTIONS (8)
  - Ankylosing spondylitis [Unknown]
  - Colitis [Unknown]
  - Diarrhoea haemorrhagic [Not Recovered/Not Resolved]
  - Influenza like illness [Recovered/Resolved]
  - Dizziness [Unknown]
  - Abdominal pain [Recovered/Resolved]
  - Musculoskeletal stiffness [Unknown]
  - Pain in extremity [Recovered/Resolved]

NARRATIVE: CASE EVENT DATE: 20221227
